FAERS Safety Report 7827218-X (Version None)
Quarter: 2011Q4

REPORT INFORMATION
  Report Type: 
  Country: None (occurrence: None)
  Receive Date: 20111020
  Receipt Date: 20110319
  Transmission Date: 20120403
  Serious: Yes (Other)
  Sender: FDA-Public Use
  Company Number: JP-GENZYME-POMP-1001422

PATIENT
  Sex: Female

DRUGS (15)
  1. MYOZYME [Suspect]
     Dosage: 300 MG, Q2W
     Route: 042
     Dates: start: 20081113
  2. MYOZYME [Suspect]
     Dosage: 150 MG, Q2W
     Route: 042
     Dates: start: 20070614, end: 20071227
  3. CARBOCISTEINE [Concomitant]
     Indication: PRODUCT USED FOR UNKNOWN INDICATION
     Dosage: 67 MG, TID
     Route: 065
     Dates: start: 20070608
  4. MYOZYME [Suspect]
     Dosage: 250 MG, Q2W
     Route: 042
     Dates: start: 20080403, end: 20081030
  5. FAMOTIDINE [Concomitant]
     Indication: GLYCOGEN STORAGE DISEASE TYPE II
     Dosage: 0.2 G, BID
     Route: 065
     Dates: start: 20100625
  6. MYOZYME [Suspect]
     Indication: GLYCOGEN STORAGE DISEASE TYPE II
     Dosage: 340 MG, Q2W
     Route: 042
  7. ENALAPRIL MALEATE [Concomitant]
     Indication: PRODUCT USED FOR UNKNOWN INDICATION
     Dosage: 1 MG, QD
     Route: 065
     Dates: start: 20070608
  8. FUROSEMIDE [Concomitant]
     Indication: PRODUCT USED FOR UNKNOWN INDICATION
     Dosage: 5 MG, UNK
     Route: 065
     Dates: start: 20070608
  9. MESALAMINE [Concomitant]
     Indication: COLITIS ULCERATIVE
     Dosage: 30 ML, QD
     Route: 065
     Dates: start: 20101113
  10. CARVEDILOL [Concomitant]
     Indication: PRODUCT USED FOR UNKNOWN INDICATION
     Dosage: 1 MG, QD
     Route: 065
     Dates: start: 20070613
  11. BETAMETHASONE SODIUM PHOSPHATE [Concomitant]
     Indication: PRODUCT USED FOR UNKNOWN INDICATION
     Dosage: 0.15 MG, UNK
     Route: 065
     Dates: start: 20070608
  12. PREDNISOLONE SODIUM SUCCINATE INJ [Concomitant]
     Indication: COLITIS ULCERATIVE
     Dosage: 20 MG, QD
     Route: 065
     Dates: start: 20101117
  13. MYOZYME [Suspect]
     Dosage: 200 MG, Q2W
     Route: 042
     Dates: start: 20080110, end: 20080320
  14. UBIDECARENONE [Concomitant]
     Indication: PRODUCT USED FOR UNKNOWN INDICATION
     Dosage: 5 MG, QD
     Route: 065
     Dates: start: 20070608
  15. LEVOCARNITINE HYDROCHLORIDE [Concomitant]
     Indication: PRODUCT USED FOR UNKNOWN INDICATION
     Dosage: 100 MG, QD
     Route: 065
     Dates: start: 20070613

REACTIONS (2)
  - CONVULSION [None]
  - SUBDURAL HAEMATOMA [None]
